FAERS Safety Report 12412569 (Version 1)
Quarter: 2016Q2

REPORT INFORMATION
  Report Type: Report from Study
  Country: US (occurrence: US)
  Receive Date: 20160527
  Receipt Date: 20160527
  Transmission Date: 20160815
  Serious: Yes (Other)
  Sender: FDA-Public Use
  Company Number: US-ABBVIE-16P-163-1635668-00

PATIENT
  Age: 79 Year
  Sex: Male

DRUGS (1)
  1. DUOPA [Suspect]
     Active Substance: CARBIDOPA\LEVODOPA
     Indication: PARKINSON^S DISEASE
     Route: 050
     Dates: start: 20160512

REACTIONS (4)
  - Stoma site infection [Not Recovered/Not Resolved]
  - Pyrexia [Unknown]
  - Atrial fibrillation [Unknown]
  - Stoma site irritation [Unknown]

NARRATIVE: CASE EVENT DATE: 201605
